FAERS Safety Report 9483560 (Version 1)
Quarter: 2013Q3

REPORT INFORMATION
  Report Type: Spontaneous
  Country: US (occurrence: US)
  Receive Date: 20130828
  Receipt Date: 20130828
  Transmission Date: 20140515
  Serious: Yes (Hospitalization, Other)
  Sender: FDA-Public Use
  Company Number: US-AMGEN-KDL286453

PATIENT
  Age: 86 Year
  Sex: 0

DRUGS (6)
  1. PROCRIT [Suspect]
     Indication: ANAEMIA
     Dosage: 40000 IU, QWK
     Route: 065
  2. OMEPRAZOLE [Concomitant]
  3. LEVOTHRYROXINE SODIUM [Concomitant]
  4. ALLOPURINOL [Concomitant]
  5. SIMVASTATIN [Concomitant]
  6. HYDROCHLOROTHIAZIDE [Concomitant]

REACTIONS (5)
  - Hospitalisation [Unknown]
  - White blood cell analysis abnormal [Unknown]
  - Pneumonia [Recovered/Resolved]
  - Prostatic operation [Unknown]
  - Therapeutic response decreased [Unknown]
